FAERS Safety Report 5724986-8 (Version None)
Quarter: 2008Q2

REPORT INFORMATION
  Report Type: 
  Country: None (occurrence: None)
  Receive Date: 20080430
  Receipt Date: 20080430
  Transmission Date: 20081010
  Serious: Yes (Other)
  Sender: FDA-Public Use
  Company Number: None

PATIENT
  Age: 68 Year
  Sex: Female
  Weight: 52.1637 kg

DRUGS (1)
  1. FOSAMAX [Suspect]
     Indication: OSTEOPOROSIS
     Dosage: 1 WEEKLY PO
     Route: 048
     Dates: start: 20030701, end: 20060401

REACTIONS (4)
  - ORAL PAIN [None]
  - PAIN IN JAW [None]
  - SENSATION OF HEAVINESS [None]
  - TOOTHACHE [None]
